FAERS Safety Report 7244546-X (Version None)
Quarter: 2011Q1

REPORT INFORMATION
  Report Type: 
  Country: None (occurrence: None)
  Receive Date: 20110125
  Receipt Date: 20110120
  Transmission Date: 20110831
  Serious: Yes (Other)
  Sender: FDA-Public Use
  Company Number: US-PFIZER INC-2011014718

PATIENT
  Sex: Male
  Weight: 137.42 kg

DRUGS (13)
  1. RISPERDAL CONSTA [Concomitant]
     Indication: SCHIZOPHRENIA
     Dosage: 50 MG, UNK, EVERY 2 WEEKS
  2. SIMVASTATIN [Concomitant]
     Indication: BLOOD CHOLESTEROL INCREASED
     Dosage: 80 MG, 1X/DAY
     Route: 048
  3. AMBIEN [Concomitant]
     Indication: SLEEP DISORDER
     Dosage: 10 MG, AS NEEDED
     Route: 048
  4. TRICOR [Concomitant]
     Dosage: 145 MG, 1X/DAY
     Route: 048
  5. METOPROLOL TARTRATE [Concomitant]
     Indication: BUNDLE BRANCH BLOCK LEFT
     Dosage: 25 MG, 1X/DAY
     Route: 048
  6. LISINOPRIL [Concomitant]
     Indication: HYPERTENSION
     Dosage: 10 MG, 1X/DAY
     Route: 048
  7. STRATTERA [Concomitant]
     Indication: DISTURBANCE IN ATTENTION
     Dosage: 40 MG, 1X/DAY
     Route: 048
  8. METFORMIN [Concomitant]
     Indication: DIABETES MELLITUS
     Dosage: 500 MG, 1X/DAY
     Route: 048
  9. GABAPENTIN [Concomitant]
     Indication: ANXIETY
     Dosage: 400 MG, 3X/DAY
     Route: 048
  10. TRAZODONE [Concomitant]
     Indication: SLEEP DISORDER
     Dosage: 300 MG, 1X/DAY
     Route: 048
  11. CHANTIX [Suspect]
     Indication: SMOKING CESSATION THERAPY
     Dosage: 0.5 MG, 1X/DAY
     Route: 048
     Dates: start: 20101221
  12. RISPERDAL [Concomitant]
     Indication: SCHIZOPHRENIA
     Dosage: 4 MG, 2X/DAY
     Route: 048
  13. OXCARBAZEPINE [Concomitant]
     Indication: ANXIETY
     Dosage: 300 MG, 2X/DAY
     Route: 048

REACTIONS (1)
  - SELF INJURIOUS BEHAVIOUR [None]
